FAERS Safety Report 6135309-7 (Version None)
Quarter: 2009Q1

REPORT INFORMATION
  Report Type: 
  Country: None (occurrence: None)
  Receive Date: 20090327
  Receipt Date: 20090314
  Transmission Date: 20090719
  Serious: Yes (Other)
  Sender: FDA-Public Use
  Company Number: US-BAYER-200916293GPV

PATIENT

DRUGS (1)
  1. ASPIRIN [Suspect]
     Indication: DRUG USE FOR UNKNOWN INDICATION
     Dosage: BETWEEN 81 MG/D AND 325 MG/D
     Route: 065

REACTIONS (1)
  - HAEMORRHAGIC STROKE [None]
